FAERS Safety Report 7277175-2 (Version None)
Quarter: 2011Q1

REPORT INFORMATION
  Report Type: 
  Country: None (occurrence: None)
  Receive Date: 20110207
  Receipt Date: 20110201
  Transmission Date: 20110831
  Serious: Yes (Other)
  Sender: FDA-Public Use
  Company Number: TR-PFIZER INC-2011022239

PATIENT
  Age: 7 Year
  Sex: Male

DRUGS (1)
  1. PREDNISOLONE [Suspect]
     Dosage: 2 MG/KG/DAY, FOR 5 DAYS

REACTIONS (2)
  - CYTOMEGALOVIRUS INFECTION [None]
  - CYSTITIS HAEMORRHAGIC [None]
